FAERS Safety Report 26007811 (Version 2)
Quarter: 2025Q4

REPORT INFORMATION
  Report Type: Spontaneous
  Country: CN (occurrence: CN)
  Receive Date: 20251106
  Receipt Date: 20251112
  Transmission Date: 20260117
  Serious: Yes (Other)
  Sender: PFIZER
  Company Number: CN-MLMSERVICE-20251027-PI688840-00270-1

PATIENT
  Age: 73 Year
  Sex: Male

DRUGS (1)
  1. METHYLPREDNISOLONE SODIUM SUCCINATE [Suspect]
     Active Substance: METHYLPREDNISOLONE SODIUM SUCCINATE
     Indication: Immunosuppressant drug therapy
     Dosage: 60 MG, 1X/DAY
     Route: 042
     Dates: start: 20240219, end: 202403

REACTIONS (3)
  - Gastrointestinal injury [Recovered/Resolved]
  - Melaena [Unknown]
  - Off label use [Unknown]

NARRATIVE: CASE EVENT DATE: 20240226
